FAERS Safety Report 14044574 (Version 1)
Quarter: 2017Q4

REPORT INFORMATION
  Report Type: Other
  Country: GB (occurrence: GB)
  Receive Date: 20171004
  Receipt Date: 20171004
  Transmission Date: 20180321
  Serious: Yes (Disabling)
  Sender: FDA-Public Use
  Company Number: GB-TAKEDA-2017TJP020760

PATIENT
  Age: 21 Year
  Sex: Male
  Weight: 55 kg

DRUGS (9)
  1. PARACETAMOL [Concomitant]
     Active Substance: ACETAMINOPHEN
     Dosage: UNK
  2. VENTOLIN [Concomitant]
     Active Substance: ALBUTEROL SULFATE
     Dosage: UNK
  3. AMOXICILLIN. [Suspect]
     Active Substance: AMOXICILLIN
     Indication: HELICOBACTER INFECTION
     Dosage: 1000 MG (TWO 500 MG CAPSULES), BID
     Route: 048
     Dates: start: 20170911, end: 20170916
  4. FUCIBET [Concomitant]
     Dosage: UNK
  5. GAVISCON                           /00237601/ [Concomitant]
     Active Substance: ALUMINUM HYDROXIDE\MAGNESIUM CARBONATE
     Dosage: UNK
  6. LANSOPRAZOLE. [Suspect]
     Active Substance: LANSOPRAZOLE
     Indication: HELICOBACTER INFECTION
     Dosage: 30 MG (TWO 15 MG CAPSULES), BID
     Route: 048
     Dates: start: 20170911, end: 20170916
  7. SALMETEROL [Concomitant]
     Active Substance: SALMETEROL
     Dosage: UNK
  8. TETRACYCLINE [Suspect]
     Active Substance: TETRACYCLINE
     Indication: HELICOBACTER INFECTION
     Dosage: 2 TABLETS, QID
     Route: 048
     Dates: start: 20170911, end: 20170916
  9. ZEROCREAM [Concomitant]
     Dosage: UNK

REACTIONS (5)
  - Eructation [Not Recovered/Not Resolved]
  - Abnormal faeces [Unknown]
  - Condition aggravated [Unknown]
  - Eczema [Unknown]
  - Abdominal discomfort [Not Recovered/Not Resolved]

NARRATIVE: CASE EVENT DATE: 20170916
